FAERS Safety Report 6192482-2 (Version None)
Quarter: 2009Q2

REPORT INFORMATION
  Report Type: 
  Country: None (occurrence: None)
  Receive Date: 20090518
  Receipt Date: 20090511
  Transmission Date: 20091009
  Serious: Yes (Other)
  Sender: FDA-Public Use
  Company Number: MK-BAYER-200920444GPV

PATIENT
  Age: 52 Year
  Sex: Female
  Weight: 84 kg

DRUGS (7)
  1. AVELOX [Suspect]
     Indication: BRONCHITIS
     Dosage: TOTAL DAILY DOSE: 400 MG  UNIT DOSE: 400 MG
     Route: 048
     Dates: start: 20090113, end: 20090120
  2. AMYNOFILLIN [Concomitant]
     Indication: BRONCHITIS
     Dosage: TOTAL DAILY DOSE: 350 MG
     Route: 048
     Dates: start: 20090116, end: 20090122
  3. AMYNOFILLIN [Concomitant]
     Dosage: TOTAL DAILY DOSE: 250 MG
     Route: 048
     Dates: start: 20090113, end: 20090115
  4. URBASON [Concomitant]
     Indication: BRONCHITIS
     Dosage: TOTAL DAILY DOSE: 80 MG
     Route: 030
     Dates: start: 20090113, end: 20090116
  5. URBASON [Concomitant]
     Dosage: TOTAL DAILY DOSE: 40 MG
     Route: 030
     Dates: start: 20090117, end: 20090120
  6. FLIXONASE [Concomitant]
     Indication: BRONCHITIS
     Dosage: TOTAL DAILY DOSE: 250 ?G
     Route: 045
     Dates: start: 20081219
  7. VENTOLIN [Concomitant]
     Indication: BRONCHITIS
     Dosage: TOTAL DAILY DOSE: 600 ?G
     Route: 055
     Dates: start: 20081219, end: 20090203

REACTIONS (4)
  - DIPLOPIA [None]
  - EYE PAIN [None]
  - RETINOPATHY [None]
  - VISION BLURRED [None]
